FAERS Safety Report 7875576-2 (Version None)
Quarter: 2011Q4

REPORT INFORMATION
  Report Type: 
  Country: None (occurrence: None)
  Receive Date: 20111031
  Receipt Date: 20111017
  Transmission Date: 20120403
  Serious: Yes (Hospitalization, Other)
  Sender: FDA-Public Use
  Company Number: US-ELI_LILLY_AND_COMPANY-US201002001261

PATIENT
  Sex: Female

DRUGS (10)
  1. FORTEO [Suspect]
     Dosage: UNK, QD
     Route: 058
     Dates: end: 20110801
  2. PRILOSEC [Concomitant]
  3. MULTI-VITAMIN [Concomitant]
  4. FORTEO [Suspect]
     Indication: OSTEOPOROSIS
     Dosage: UNK UNK, QD
     Route: 058
     Dates: start: 20091028
  5. PREDNISONE [Concomitant]
  6. SYNTHROID [Concomitant]
  7. VITAMIN D [Concomitant]
  8. CALCIUM +VIT D [Concomitant]
  9. ARAVA [Concomitant]
  10. VESICARE [Concomitant]

REACTIONS (8)
  - HOSPITALISATION [None]
  - LIMB INJURY [None]
  - INCONTINENCE [None]
  - FEMUR FRACTURE [None]
  - FALL [None]
  - JOINT INJURY [None]
  - MALAISE [None]
  - LOWER LIMB FRACTURE [None]
